FAERS Safety Report 7589889-5 (Version None)
Quarter: 2011Q3

REPORT INFORMATION
  Report Type: 
  Country: None (occurrence: None)
  Receive Date: 20110705
  Receipt Date: 20110622
  Transmission Date: 20111222
  Serious: Yes (Hospitalization)
  Sender: FDA-Public Use
  Company Number: CH-ELI_LILLY_AND_COMPANY-CH201106006900

PATIENT
  Sex: Male

DRUGS (5)
  1. CARBOPLATIN [Suspect]
     Indication: NON-SMALL CELL LUNG CANCER
     Dosage: 300 MG, UNKNOWN
     Route: 042
     Dates: start: 20110608
  2. FOLIC ACID [Concomitant]
     Dosage: 5 MG, UNK
     Route: 048
     Dates: start: 20110608
  3. PEMETREXED [Suspect]
     Indication: NON-SMALL CELL LUNG CANCER
     Dosage: 600 MG, UNKNOWN
     Route: 042
     Dates: start: 20110608
  4. DEXAMETHASONE [Concomitant]
     Dosage: 8 MG, UNK
     Route: 048
     Dates: start: 20110608
  5. BEVACIZUMAB [Suspect]
     Indication: NON-SMALL CELL LUNG CANCER
     Dosage: 600 MG, UNKNOWN
     Route: 042
     Dates: start: 20110608

REACTIONS (1)
  - DYSPNOEA [None]
